FAERS Safety Report 8404774-4 (Version None)
Quarter: 2012Q2

REPORT INFORMATION
  Report Type: 
  Country: None (occurrence: None)
  Receive Date: 20120601
  Receipt Date: 20120521
  Transmission Date: 20120825
  Serious: No
  Sender: FDA-Public Use
  Company Number: US-ASTRAZENECA-2012SE28129

PATIENT
  Age: 52 Year
  Sex: Female

DRUGS (9)
  1. CARVEDILOL [Concomitant]
     Indication: HYPERTENSION
     Route: 048
  2. CARVEDILOL [Concomitant]
     Indication: ANGINA PECTORIS
     Route: 048
  3. CRESTOR [Suspect]
     Indication: BLOOD CHOLESTEROL
     Route: 048
  4. ADVAIR DISKUS 100/50 [Concomitant]
  5. AMITRIPTYLINE HCL [Concomitant]
     Indication: MIGRAINE
     Route: 048
  6. ANTIVERT [Concomitant]
     Indication: MENIERE'S DISEASE
     Route: 048
  7. SYMBICORT [Suspect]
     Indication: CHRONIC OBSTRUCTIVE PULMONARY DISEASE
     Dosage: 2 PUFFS TWO TIMES A DAY
     Route: 055
     Dates: start: 20120402
  8. TOPIRAMATE [Concomitant]
     Indication: MIGRAINE
     Route: 048
  9. SODIUM BICARBONATE [Concomitant]
     Indication: PARAESTHESIA
     Route: 048

REACTIONS (5)
  - BACK PAIN [None]
  - COUGH [None]
  - DYSPNOEA [None]
  - OROPHARYNGEAL PAIN [None]
  - APHAGIA [None]
